FAERS Safety Report 8433792-5 (Version None)
Quarter: 2012Q2

REPORT INFORMATION
  Report Type: 
  Country: None (occurrence: None)
  Receive Date: 20120323
  Receipt Date: 20110914
  Transmission Date: 20120825
  Serious: Yes (Other)
  Sender: FDA-Public Use
  Company Number: 163-21880-11071958

PATIENT
  Age: 51 Year
  Sex: Male

DRUGS (28)
  1. MAGIC MOUTHWASH (ALL OTHER THERAPEUTIC PRODUCTS) [Concomitant]
  2. PREDNISONE [Concomitant]
  3. DECADRON [Concomitant]
  4. PROCHLORPERAZINE (PROCHLORPERAZINE) (TABLETS) [Concomitant]
  5. CEFAZOLIN [Concomitant]
  6. ZOMETA [Concomitant]
  7. REVLIMID [Suspect]
     Indication: MULTIPLE MYELOMA
     Dosage: 25 MG, X 14, PO   10 MG, QD, OFF 7, PO
     Route: 048
     Dates: start: 20100802
  8. REVLIMID [Suspect]
     Indication: MULTIPLE MYELOMA
     Dosage: 25 MG, X 14, PO   10 MG, QD, OFF 7, PO
     Route: 048
     Dates: start: 20081101, end: 20090903
  9. TRAZODONE HCL [Concomitant]
  10. CLOTRIMAZOLE (CLOTRIMAZOLE) (TROCHE) [Concomitant]
  11. PROVIGIL [Concomitant]
  12. CULTURELLE (CULTURELLE) (CAPSULES) [Concomitant]
  13. CYCLOBENZAPRINE (CYCLOBENZAPRINE) (TABLETS0 [Concomitant]
  14. AMBIEN [Concomitant]
  15. NEURONTIN [Concomitant]
  16. POTASSIUM CHLORIDE [Concomitant]
  17. FLOMAX (TAMSULOSIN HYDROCHLORIDE) (CAPSULUES) [Concomitant]
  18. RESTORIL [Concomitant]
  19. FENTANYL [Concomitant]
  20. CLONAZEPAM [Concomitant]
  21. COUMADIN [Concomitant]
  22. DULCOLAX (BISACODYL) (ENTERIC-COATED TABLET) [Concomitant]
  23. CYMBALTA 9DULOXETINE HYDROCHLORIDE) (CAPSULES) [Concomitant]
  24. ONDANSETRON (ONDANSETRON) (TABLETS) [Concomitant]
  25. MORPHINE SULFATE INJ [Concomitant]
  26. HYDROCODONE/APAP (PROCET  /USA/) (UNKNOWN) [Concomitant]
  27. PROCRIT [Concomitant]
  28. COMPAZINE (PROCHLORPERAZINE EDISYLATE) (TABLETS) [Concomitant]

REACTIONS (2)
  - ORAL INFECTION [None]
  - TRANSIENT ISCHAEMIC ATTACK [None]
